FAERS Safety Report 6590563-2 (Version None)
Quarter: 2010Q1

REPORT INFORMATION
  Report Type: 
  Country: None (occurrence: None)
  Receive Date: 20100219
  Receipt Date: 20100216
  Transmission Date: 20100710
  Serious: Yes (Hospitalization)
  Sender: FDA-Public Use
  Company Number: DE-B.I. PHARMACEUTICALS,INC./RIDGEFIELD-2010-DE-01097DE

PATIENT
  Age: 80 Year
  Sex: Female
  Weight: 62 kg

DRUGS (5)
  1. SPIRIVA [Suspect]
     Indication: CHRONIC OBSTRUCTIVE PULMONARY DISEASE
     Dosage: 1 PUF
     Route: 055
  2. SPIRIVA [Suspect]
     Dosage: 2 PUF
     Route: 055
     Dates: start: 20100216
  3. ENALAPRIL MALEATE [Concomitant]
  4. ISCOVER [Concomitant]
  5. CONCOR [Concomitant]

REACTIONS (8)
  - ANGINA PECTORIS [None]
  - ANXIETY [None]
  - BALANCE DISORDER [None]
  - CHEST DISCOMFORT [None]
  - EYE PAIN [None]
  - HYPERTENSION [None]
  - PARAESTHESIA [None]
  - TINNITUS [None]
